FAERS Safety Report 11019051 (Version 2)
Quarter: 2015Q2

REPORT INFORMATION
  Report Type: Spontaneous
  Country: US (occurrence: US)
  Receive Date: 20150412
  Receipt Date: 20150525
  Transmission Date: 20150821
  Serious: No
  Sender: FDA-Public Use
  Company Number: US-JNJFOC-20130300151

PATIENT
  Sex: Female

DRUGS (2)
  1. LEVAQUIN [Suspect]
     Active Substance: LEVOFLOXACIN
     Indication: PRODUCT USED FOR UNKNOWN INDICATION
     Route: 065
  2. MIGRAINE MEDICATIONS [Interacting]
     Active Substance: UNSPECIFIED INGREDIENT
     Indication: MIGRAINE
     Route: 065

REACTIONS (2)
  - Adverse event [Unknown]
  - Drug interaction [Unknown]
